FAERS Safety Report 21039195 (Version 1)
Quarter: 2022Q3

REPORT INFORMATION
  Report Type: Spontaneous
  Country: FR (occurrence: FR)
  Receive Date: 20220704
  Receipt Date: 20220704
  Transmission Date: 20221026
  Serious: Yes (Hospitalization)
  Sender: FDA-Public Use
  Company Number: None

PATIENT
  Age: 70 Year
  Sex: Female

DRUGS (3)
  1. CARBOPLATIN [Suspect]
     Active Substance: CARBOPLATIN
     Indication: Lung adenocarcinoma
     Dosage: AUC 5
     Route: 042
     Dates: start: 20220214, end: 20220419
  2. PEMBROLIZUMAB [Suspect]
     Active Substance: PEMBROLIZUMAB
     Indication: Lung adenocarcinoma
     Route: 042
     Dates: start: 20220328
  3. PEMETREXED [Suspect]
     Active Substance: PEMETREXED
     Indication: Lung adenocarcinoma
     Route: 042
     Dates: start: 20220214, end: 20220419

REACTIONS (5)
  - Vulvovaginal mycotic infection [Unknown]
  - Rash [Unknown]
  - Pancytopenia [Unknown]
  - Mucosal inflammation [Unknown]
  - Acute kidney injury [Unknown]

NARRATIVE: CASE EVENT DATE: 20220422
